FAERS Safety Report 23867805 (Version 5)
Quarter: 2024Q2

REPORT INFORMATION
  Report Type: Report from Study
  Country: US (occurrence: US)
  Receive Date: 20240517
  Receipt Date: 20240627
  Transmission Date: 20240716
  Serious: Yes (Hospitalization, Other)
  Sender: FDA-Public Use
  Company Number: US-TAKEDA-2024TUS014086

PATIENT
  Age: 60 Year
  Sex: Male
  Weight: 49 kg

DRUGS (33)
  1. PARATHYROID HORMONE [Suspect]
     Active Substance: PARATHYROID HORMONE
     Indication: Hypoparathyroidism
     Dosage: 50 MICROGRAM, QD
     Route: 058
     Dates: start: 20200402
  2. PARATHYROID HORMONE [Suspect]
     Active Substance: PARATHYROID HORMONE
     Indication: Hypoparathyroidism
     Dosage: 50 MICROGRAM, QD
     Route: 058
     Dates: start: 20200402
  3. PARATHYROID HORMONE [Suspect]
     Active Substance: PARATHYROID HORMONE
     Indication: Hypoparathyroidism
     Dosage: 50 MICROGRAM, QD
     Route: 058
     Dates: start: 20200402
  4. ALBUTEROL [Concomitant]
     Active Substance: ALBUTEROL
     Indication: Asthma
     Dosage: UNK
     Route: 055
     Dates: start: 20100126
  5. BENZONATATE [Concomitant]
     Active Substance: BENZONATATE
     Indication: Asthma
     Dosage: UNK
     Route: 048
     Dates: start: 20121231
  6. CLOTRIMAZOLE [Concomitant]
     Active Substance: CLOTRIMAZOLE
     Dosage: UNK
     Route: 061
     Dates: start: 20190304
  7. FLOVENT HFA [Concomitant]
     Active Substance: FLUTICASONE PROPIONATE
     Indication: Asthma
     Dosage: UNK
     Route: 055
     Dates: start: 20190304
  8. NAPROXEN [Concomitant]
     Active Substance: NAPROXEN
     Indication: Analgesic therapy
     Dosage: UNK
     Route: 048
     Dates: start: 20200103
  9. LISINOPRIL [Concomitant]
     Active Substance: LISINOPRIL
     Indication: Hypertension
     Dosage: UNK
     Route: 048
     Dates: start: 20210217
  10. LISINOPRIL [Concomitant]
     Active Substance: LISINOPRIL
     Indication: Heart failure with reduced ejection fraction
  11. METOPROLOL SUCCINATE [Concomitant]
     Active Substance: METOPROLOL SUCCINATE
     Indication: Chest pain
     Dosage: UNK
     Route: 048
     Dates: start: 20210217
  12. METOPROLOL SUCCINATE [Concomitant]
     Active Substance: METOPROLOL SUCCINATE
     Indication: Heart failure with reduced ejection fraction
  13. ASPIRIN [Concomitant]
     Active Substance: ASPIRIN
     Indication: Prophylaxis
     Dosage: UNK
     Route: 048
     Dates: start: 20220327
  14. ATORVASTATIN [Concomitant]
     Active Substance: ATORVASTATIN
     Indication: Blood cholesterol decreased
     Dosage: UNK
     Route: 048
     Dates: start: 20220327
  15. OXYGEN [Concomitant]
     Active Substance: OXYGEN
     Indication: COVID-19
     Dosage: UNK
     Route: 055
     Dates: start: 20230114
  16. DOXYCYCLINE [Concomitant]
     Active Substance: DOXYCYCLINE\DOXYCYCLINE HYCLATE
     Indication: COVID-19
     Dosage: UNK
     Route: 048
     Dates: start: 20230118
  17. DEXAMETHASONE [Concomitant]
     Active Substance: DEXAMETHASONE
     Indication: COVID-19
     Dosage: UNK
     Route: 048
     Dates: start: 20230118
  18. METOPROLOL [Concomitant]
     Active Substance: METOPROLOL
     Indication: Blood pressure measurement
     Dosage: UNK
     Route: 048
     Dates: start: 20230118
  19. METOPROLOL [Concomitant]
     Active Substance: METOPROLOL
     Indication: Syncope
  20. ADVAIR HFA [Concomitant]
     Active Substance: FLUTICASONE PROPIONATE\SALMETEROL XINAFOATE
     Indication: Asthma
     Dosage: UNK
     Route: 055
     Dates: start: 20230118
  21. DUONEB [Concomitant]
     Active Substance: ALBUTEROL SULFATE\IPRATROPIUM BROMIDE
     Indication: Asthma
     Dosage: UNK
     Route: 055
     Dates: start: 20230118
  22. ASCORBIC ACID [Concomitant]
     Active Substance: ASCORBIC ACID
     Indication: Supplementation therapy
     Dosage: UNK
     Route: 048
     Dates: start: 20220329, end: 20220330
  23. LACTATED RINGERS SOLUTION [Concomitant]
     Active Substance: CALCIUM CHLORIDE\POTASSIUM CHLORIDE\SODIUM CHLORIDE\SODIUM LACTATE
     Indication: Hypotension
     Dosage: UNK
     Route: 042
     Dates: start: 20220329, end: 20220329
  24. IOPAMIDOL [Concomitant]
     Active Substance: IOPAMIDOL
     Indication: Prophylaxis
     Dosage: UNK
     Route: 042
     Dates: start: 20220328, end: 20220328
  25. MIDAZOLAM [Concomitant]
     Active Substance: MIDAZOLAM
     Indication: Prophylaxis
     Dosage: UNK
     Route: 042
     Dates: start: 20220328, end: 20220328
  26. FENTANYL CITRATE [Concomitant]
     Active Substance: FENTANYL CITRATE
     Indication: Prophylaxis
     Dosage: UNK
     Route: 042
     Dates: start: 20220328, end: 20220328
  27. SODIUM CHLORIDE [Concomitant]
     Active Substance: SODIUM CHLORIDE
     Indication: Prophylaxis
     Dosage: UNK
     Route: 042
     Dates: start: 20220328, end: 20220328
  28. VERAPAMIL [Concomitant]
     Active Substance: VERAPAMIL HYDROCHLORIDE
     Indication: Hypertension
     Dosage: UNK
     Route: 042
     Dates: start: 20220328, end: 20220328
  29. HEPARIN [Concomitant]
     Active Substance: HEPARIN SODIUM
     Indication: Chest pain
     Dosage: UNK
     Route: 042
     Dates: start: 20220327, end: 20220328
  30. PERFLUTREN [Concomitant]
     Active Substance: PERFLUTREN
     Indication: Prophylaxis
     Dosage: UNK
     Route: 042
     Dates: start: 20220328, end: 20220328
  31. SENNA [Concomitant]
     Active Substance: SENNA LEAF\SENNOSIDES\SENNOSIDES A AND B
     Indication: Prophylaxis
     Dosage: UNK
     Route: 048
     Dates: start: 20220327, end: 20220329
  32. ACETAMINOPHEN [Concomitant]
     Active Substance: ACETAMINOPHEN
     Dosage: UNK
     Route: 048
     Dates: start: 20220327, end: 20220328
  33. CLOPIDOGREL [Concomitant]
     Active Substance: CLOPIDOGREL BISULFATE
     Indication: Catheter placement
     Dosage: UNK
     Route: 048
     Dates: start: 20220327, end: 20220328

REACTIONS (3)
  - Calcium ionised decreased [Recovered/Resolved]
  - Pneumonia [Recovered/Resolved]
  - Hypocalcaemia [Recovered/Resolved]

NARRATIVE: CASE EVENT DATE: 20240111
